FAERS Safety Report 12477250 (Version 2)
Quarter: 2016Q3

REPORT INFORMATION
  Report Type: Spontaneous
  Country: US (occurrence: US)
  Receive Date: 20160617
  Receipt Date: 20160915
  Transmission Date: 20161109
  Serious: No
  Sender: FDA-Public Use
  Company Number: US-ALLERGAN-1657287US

PATIENT
  Age: 53 Year
  Sex: Female

DRUGS (1)
  1. VIBERZI [Suspect]
     Active Substance: ELUXADOLINE
     Indication: IRRITABLE BOWEL SYNDROME
     Dosage: 75 MG, SINGLE
     Route: 048
     Dates: start: 20160423, end: 20160423

REACTIONS (4)
  - Amylase increased [Unknown]
  - Lipase increased [Unknown]
  - Drug prescribing error [Unknown]
  - Gastroenteritis [Unknown]
